FAERS Safety Report 15998762 (Version 2)
Quarter: 2019Q1

REPORT INFORMATION
  Report Type: Spontaneous
  Country: US (occurrence: US)
  Receive Date: 20190223
  Receipt Date: 20190304
  Transmission Date: 20190418
  Serious: Yes (Other)
  Sender: FDA-Public Use
  Company Number: US-ASTRAZENECA-2018SF34758

PATIENT
  Age: 30466 Day
  Sex: Female
  Weight: 100.2 kg

DRUGS (11)
  1. LASIX [Concomitant]
     Active Substance: FUROSEMIDE
  2. GABAPENTIN. [Concomitant]
     Active Substance: GABAPENTIN
  3. ALLOPURINOL. [Concomitant]
     Active Substance: ALLOPURINOL
  4. PROMETHAZINE [Concomitant]
     Active Substance: PROMETHAZINE\PROMETHAZINE HYDROCHLORIDE
  5. SIMVASTATIN. [Concomitant]
     Active Substance: SIMVASTATIN
  6. METOPROLOL. [Concomitant]
     Active Substance: METOPROLOL
  7. FUROSEMIDE. [Concomitant]
     Active Substance: FUROSEMIDE
  8. DONEPEZIL HYDROCHLORIDE. [Concomitant]
     Active Substance: DONEPEZIL HYDROCHLORIDE
     Route: 048
  9. NEXIUM [Suspect]
     Active Substance: ESOMEPRAZOLE MAGNESIUM
     Route: 048
     Dates: start: 2004, end: 2016
  10. LISINOPRIL. [Concomitant]
     Active Substance: LISINOPRIL
  11. AMITRIPTYLINE HYDROCHLORIDE. [Concomitant]
     Active Substance: AMITRIPTYLINE HYDROCHLORIDE
     Route: 048

REACTIONS (5)
  - Chronic kidney disease [Unknown]
  - Nephrogenic anaemia [Unknown]
  - Renal failure [Unknown]
  - Acute kidney injury [Unknown]
  - Renal injury [Unknown]

NARRATIVE: CASE EVENT DATE: 20160513
